FAERS Safety Report 17421257 (Version 1)
Quarter: 2020Q1

REPORT INFORMATION
  Report Type: Spontaneous
  Country: NL (occurrence: NL)
  Receive Date: 20200214
  Receipt Date: 20200214
  Transmission Date: 20200409
  Serious: Yes (Hospitalization)
  Sender: FDA-Public Use
  Company Number: NVSC2020NL034478

PATIENT
  Age: 57 Year
  Sex: Female

DRUGS (6)
  1. LAMICTAL [Concomitant]
     Active Substance: LAMOTRIGINE
     Indication: PRODUCT USED FOR UNKNOWN INDICATION
     Dosage: 75 MG, Q8H (2 DD 3)
     Route: 048
  2. FRISIUM [Concomitant]
     Active Substance: CLOBAZAM
     Indication: PRODUCT USED FOR UNKNOWN INDICATION
     Dosage: 10 MG, Q12H
     Route: 048
  3. PYRIDOXINE [Concomitant]
     Active Substance: PYRIDOXINE
     Indication: PRODUCT USED FOR UNKNOWN INDICATION
     Dosage: 100 MG, QD (1 DD 1)
     Route: 048
  4. OXCARBAZEPIN [Concomitant]
     Active Substance: OXCARBAZEPINE
     Indication: PRODUCT USED FOR UNKNOWN INDICATION
     Dosage: 600 MG, Q12H (2 DD 2)
     Route: 048
  5. TERBINAFINE. [Suspect]
     Active Substance: TERBINAFINE
     Indication: FUNGAL INFECTION
     Dosage: 250 MG, QD (1X DAAGS 1 TABLET)
     Route: 048
     Dates: start: 20191015, end: 20191019
  6. FUCIDIN [Concomitant]
     Active Substance: FUSIDATE SODIUM
     Indication: PRODUCT USED FOR UNKNOWN INDICATION
     Dosage: 1 DF, Q8H (STRENGTH: 20 MG/G, 3 X DAAGS AANBRENGEN)
     Route: 003
     Dates: start: 20191015

REACTIONS (1)
  - Epilepsy [Recovered/Resolved]

NARRATIVE: CASE EVENT DATE: 20191018
